FAERS Safety Report 10935795 (Version 2)
Quarter: 2017Q1

REPORT INFORMATION
  Report Type: Report from Study
  Country: US (occurrence: US)
  Receive Date: 20150320
  Receipt Date: 20170214
  Transmission Date: 20170428
  Serious: Yes (Hospitalization, Other)
  Sender: FDA-Public Use
  Company Number: US-UCBSA-2015008504

PATIENT
  Age: 63 Year
  Sex: Male

DRUGS (2)
  1. ROTIGOTINE [Suspect]
     Active Substance: ROTIGOTINE
     Dosage: 4 MG
  2. ROTIGOTINE [Suspect]
     Active Substance: ROTIGOTINE
     Indication: PARKINSON^S DISEASE
     Dosage: 2 MG/1 DAILY (1 1/2-2 YEARS
     Route: 062

REACTIONS (6)
  - Intentional product misuse [Unknown]
  - Back pain [Not Recovered/Not Resolved]
  - Arthralgia [Not Recovered/Not Resolved]
  - Parkinson^s disease [Not Recovered/Not Resolved]
  - Dysstasia [Not Recovered/Not Resolved]
  - Spinal cord compression [Not Recovered/Not Resolved]

NARRATIVE: CASE EVENT DATE: 201501
